FAERS Safety Report 12602841 (Version 1)
Quarter: 2016Q3

REPORT INFORMATION
  Report Type: Report from Study
  Country: US (occurrence: US)
  Receive Date: 20160728
  Receipt Date: 20160728
  Transmission Date: 20161109
  Serious: Yes (Other)
  Sender: FDA-Public Use
  Company Number: US-SA-2015SA096744

PATIENT
  Age: 67 Year
  Sex: Female

DRUGS (2)
  1. LEMTRADA [Suspect]
     Active Substance: ALEMTUZUMAB
     Indication: MULTIPLE SCLEROSIS
     Route: 041
     Dates: start: 20150615, end: 20150619
  2. LEMTRADA [Suspect]
     Active Substance: ALEMTUZUMAB
     Indication: MULTIPLE SCLEROSIS
     Route: 041
     Dates: start: 20160620, end: 20160622

REACTIONS (13)
  - Asthenia [Recovered/Resolved]
  - Rhinorrhoea [Not Recovered/Not Resolved]
  - Panic reaction [Recovering/Resolving]
  - Urinary tract infection [Not Recovered/Not Resolved]
  - Feeling abnormal [Recovering/Resolving]
  - Blood pressure decreased [Recovered/Resolved]
  - Peripheral swelling [Recovering/Resolving]
  - Pulmonary congestion [Not Recovered/Not Resolved]
  - Throat irritation [Not Recovered/Not Resolved]
  - Pyrexia [Not Recovered/Not Resolved]
  - Joint swelling [Recovering/Resolving]
  - Sinusitis [Not Recovered/Not Resolved]
  - Dysphonia [Not Recovered/Not Resolved]

NARRATIVE: CASE EVENT DATE: 2015
